FAERS Safety Report 20329730 (Version 1)
Quarter: 2022Q1

REPORT INFORMATION
  Report Type: Other
  Country: US (occurrence: US)
  Receive Date: 20220112
  Receipt Date: 20220112
  Transmission Date: 20220424
  Serious: No
  Sender: FDA-Public Use
  Company Number: US-Covis Pharma GmbH-2021COV24226

PATIENT
  Age: 23 Year
  Sex: Female
  Weight: 106.24 kg

DRUGS (1)
  1. MAKENA [Suspect]
     Active Substance: HYDROXYPROGESTERONE CAPROATE
     Indication: Premature delivery
     Route: 058

REACTIONS (3)
  - Migraine [Recovered/Resolved]
  - Injection site nodule [Recovered/Resolved]
  - Injection site pruritus [Recovered/Resolved]
